FAERS Safety Report 8538089 (Version 2)
Quarter: 2014Q1

REPORT INFORMATION
  Report Type: Spontaneous
  Country: FI (occurrence: FI)
  Receive Date: 20120501
  Receipt Date: 20140207
  Transmission Date: 20141002
  Serious: No
  Sender: FDA-Public Use
  Company Number: FI-JNJFOC-20120411258

PATIENT
  Age: 84 Year
  Sex: Female

DRUGS (4)
  1. DUROGESIC [Suspect]
     Indication: PAIN MANAGEMENT
     Route: 062
  2. PARA-TABS [Concomitant]
     Route: 065
  3. GABAPENTIN [Concomitant]
     Route: 065
  4. NEUROMAX [Concomitant]
     Route: 065

REACTIONS (2)
  - Inappropriate schedule of drug administration [Unknown]
  - Product quality issue [Unknown]
